FAERS Safety Report 12735538 (Version 2)
Quarter: 2016Q3

REPORT INFORMATION
  Report Type: Report from Study
  Country: BR (occurrence: BR)
  Receive Date: 20160912
  Receipt Date: 20160922
  Transmission Date: 20161109
  Serious: Yes (Other)
  Sender: FDA-Public Use
  Company Number: PHHY2016BR124779

PATIENT
  Age: 44 Year
  Sex: Female
  Weight: 78 kg

DRUGS (4)
  1. GILENYA [Suspect]
     Active Substance: FINGOLIMOD HYDROCHLORIDE
     Indication: MULTIPLE SCLEROSIS
     Dosage: 0.5 MG, QD
     Route: 065
  2. TOPIRAMATE. [Concomitant]
     Active Substance: TOPIRAMATE
     Indication: BIPOLAR DISORDER
     Dosage: 3 DF, QD
     Route: 065
  3. FRISIUM [Concomitant]
     Active Substance: CLOBAZAM
     Indication: INSOMNIA
     Dosage: 1 DF, QD
     Route: 065
  4. MELLERIL//THIORIDAZINE [Concomitant]
     Indication: INSOMNIA
     Dosage: 1 DF, QD
     Route: 065

REACTIONS (2)
  - Lower limb fracture [Recovering/Resolving]
  - Gait disturbance [Unknown]

NARRATIVE: CASE EVENT DATE: 20160830
